APPROVED DRUG PRODUCT: MIDAZOLAM IN 0.8% SODIUM CHLORIDE
Active Ingredient: MIDAZOLAM
Strength: 100MG/100ML (1MG/ML)
Dosage Form/Route: SOLUTION;INTRAVENOUS
Application: A218454 | Product #002
Applicant: B BRAUN MEDICAL INC
Approved: May 1, 2025 | RLD: No | RS: Yes | Type: RX